FAERS Safety Report 5977675-9 (Version None)
Quarter: 2008Q4

REPORT INFORMATION
  Report Type: 
  Country: None (occurrence: None)
  Receive Date: 20081203
  Receipt Date: 20081125
  Transmission Date: 20090506
  Serious: Yes (Hospitalization, Other)
  Sender: FDA-Public Use
  Company Number: DK-AVENTIS-200819634GDDC

PATIENT
  Age: 72 Year
  Sex: Female

DRUGS (19)
  1. ARAVA [Suspect]
     Indication: RHEUMATOID ARTHRITIS
     Route: 048
     Dates: start: 20080723, end: 20080916
  2. DIGOXIN [Concomitant]
     Route: 048
  3. NEXIUM [Concomitant]
     Route: 048
  4. CALCICHEW D3 [Concomitant]
     Dosage: DOSE: 2 TABLETS
     Route: 048
  5. MAREVAN [Concomitant]
     Dosage: DOSE: ACCORDING TO PLAN
     Route: 048
  6. VERAPAMIL [Concomitant]
     Route: 048
  7. VAGIFEM [Concomitant]
     Route: 067
  8. FLUCONAZOLE [Concomitant]
     Dosage: DOSE: FOR 4 WEEKS
     Route: 048
  9. PINEX [Concomitant]
     Route: 048
  10. OXYCONTIN [Concomitant]
     Route: 048
  11. TRUXAL                             /00012101/ [Concomitant]
     Dosage: DOSE: 25 MG X 2
     Route: 048
  12. NIMADORM [Concomitant]
     Route: 048
  13. REMERON-S [Concomitant]
     Route: 048
  14. FLUTICASONE PROPIONATE [Concomitant]
     Dosage: DOSE: 500 MG X 2
     Route: 055
  15. SPIRIVA [Concomitant]
     Route: 055
  16. PICOLON [Concomitant]
     Dosage: DOSE: 10 DROPS
     Route: 048
  17. VENTOLIN [Concomitant]
     Route: 055
  18. CEFUROXIME [Concomitant]
     Route: 042
     Dates: start: 20080901, end: 20080902
  19. CEFOTAXIM [Concomitant]
     Route: 042
     Dates: start: 20080902, end: 20080919

REACTIONS (7)
  - BLOOD BILIRUBIN INCREASED [None]
  - COOMBS DIRECT TEST POSITIVE [None]
  - HAEMOGLOBIN DECREASED [None]
  - HAEMOLYTIC ANAEMIA [None]
  - HAPTOGLOBIN DECREASED [None]
  - JAUNDICE [None]
  - PANCREATIC CARCINOMA [None]
